FAERS Safety Report 24672725 (Version 1)
Quarter: 2024Q4

REPORT INFORMATION
  Report Type: Spontaneous
  Country: PH (occurrence: PH)
  Receive Date: 20241127
  Receipt Date: 20241127
  Transmission Date: 20250115
  Serious: Yes (Hospitalization)
  Sender: MDD OPERATIONS
  Company Number: PH-ZAMBON-202403138COR

PATIENT
  Age: 65 Year
  Sex: Female
  Weight: 41 kg

DRUGS (6)
  1. SAFINAMIDE [Suspect]
     Active Substance: SAFINAMIDE
     Indication: Parkinson^s disease
     Route: 048
     Dates: start: 20241010, end: 20241013
  2. SAFINAMIDE [Suspect]
     Active Substance: SAFINAMIDE
     Indication: On and off phenomenon
  3. LAVIDA [Concomitant]
     Indication: Parkinson^s disease
     Dosage: EACH DF OF 1000/100 MG
     Route: 048
     Dates: start: 2019
  4. TIDOMET [Concomitant]
     Indication: Parkinson^s disease
     Dosage: EACH DF OF 200/50 MG
     Route: 048
     Dates: start: 2019
  5. EXULTEN [Concomitant]
     Indication: Depression
     Dosage: 50 MG
     Route: 048
     Dates: start: 20240901
  6. RIVOTRIL [Concomitant]
     Active Substance: CLONAZEPAM

REACTIONS (3)
  - Vomiting [Unknown]
  - Headache [Unknown]
  - Hypertension [Unknown]

NARRATIVE: CASE EVENT DATE: 20241012
